FAERS Safety Report 5168506-8 (Version None)
Quarter: 2006Q4

REPORT INFORMATION
  Report Type: 
  Country: None (occurrence: None)
  Receive Date: 20061208
  Receipt Date: 20061117
  Transmission Date: 20070319
  Serious: Yes (Hospitalization, Congenital Anomaly)
  Sender: FDA-Public Use
  Company Number: FR-NOVOPROD-258763

PATIENT
  Sex: Male
  Weight: 3.27 kg

DRUGS (1)
  1. NORDITROPIN SIMPLEXX [Suspect]
     Indication: GROWTH HORMONE DEFICIENCY
     Dosage: .2 MG, QD
     Route: 064
     Dates: start: 20031216, end: 20051030

REACTIONS (12)
  - CAESAREAN SECTION [None]
  - DRUG EXPOSURE DURING PREGNANCY [None]
  - FOETAL HEART RATE DISORDER [None]
  - HAEMODIALYSIS [None]
  - NEONATAL DISORDER [None]
  - NEPHRECTOMY [None]
  - PLACENTA PRAEVIA [None]
  - PREMATURE BABY [None]
  - PYELOCALIECTASIS [None]
  - RENAL FAILURE [None]
  - URETHRAL OBSTRUCTION [None]
  - URINARY TRACT INFECTION [None]
